FAERS Safety Report 19361482 (Version 3)
Quarter: 2021Q3

REPORT INFORMATION
  Report Type: Spontaneous
  Country: US (occurrence: US)
  Receive Date: 20210601
  Receipt Date: 20210813
  Transmission Date: 20211014
  Serious: Yes (Hospitalization)
  Sender: FDA-Public Use
  Company Number: US-AMNEAL PHARMACEUTICALS-2021-AMRX-01862

PATIENT
  Age: 53 Year
  Sex: Female

DRUGS (7)
  1. RYTARY [Suspect]
     Active Substance: CARBIDOPA\LEVODOPA
     Dosage: 2 IN MORNING, 1 AT NOON AND 1 IN EVENING
     Route: 048
     Dates: start: 202105
  2. RYTARY [Suspect]
     Active Substance: CARBIDOPA\LEVODOPA
     Indication: PARKINSON^S DISEASE
     Dosage: 2 CAPSULES, 3X/DAY
     Route: 048
  3. RYTARY [Suspect]
     Active Substance: CARBIDOPA\LEVODOPA
     Dosage: 4 CAPSULES, DAILY (2 CAPSULES IN MORNING, 1 CAPSULE IN NOON AND 1 CAPSULE IN EVENING)
     Route: 048
  4. RYTARY [Suspect]
     Active Substance: CARBIDOPA\LEVODOPA
     Dosage: 3 CAPSULES, 3 /DAY
     Route: 048
     Dates: start: 20210525, end: 202105
  5. RYTARY [Suspect]
     Active Substance: CARBIDOPA\LEVODOPA
     Dosage: 8 CAPSULES, DAILY (3 CAPSULES IN AM, 3 CAPSULES AT PM, 2 CAPSULES IN EVENING)
     Route: 048
  6. RYTARY [Suspect]
     Active Substance: CARBIDOPA\LEVODOPA
     Dosage: 8 CAPSULES,DAILY 3 CAPSULES IN AM, 3 CAPSULES AT PM, 2 CAPSULES IN EVENING)
     Route: 048
     Dates: start: 202105
  7. ENTACAPONE. [Concomitant]
     Active Substance: ENTACAPONE
     Indication: PRODUCT USED FOR UNKNOWN INDICATION
     Route: 065

REACTIONS (7)
  - Headache [Recovering/Resolving]
  - Nausea [Recovered/Resolved]
  - Nightmare [Recovering/Resolving]
  - Abnormal behaviour [Recovering/Resolving]
  - Muscle twitching [Recovering/Resolving]
  - Back pain [Recovering/Resolving]
  - Tremor [Recovered/Resolved]

NARRATIVE: CASE EVENT DATE: 20210510
